FAERS Safety Report 4727922-6 (Version None)
Quarter: 2005Q3

REPORT INFORMATION
  Report Type: 
  Country: None (occurrence: None)
  Receive Date: 20050725
  Receipt Date: 20050302
  Transmission Date: 20060218
  Serious: No
  Sender: FDA-Public Use
  Company Number: US_0503114665

PATIENT
  Age: 30 Year
  Sex: Female

DRUGS (4)
  1. STRATTERA [Suspect]
  2. EFFEXOR [Concomitant]
  3. ADDERALL 30 [Concomitant]
  4. AMBIEN [Concomitant]

REACTIONS (1)
  - SUICIDAL IDEATION [None]
